FAERS Safety Report 13929363 (Version 1)
Quarter: 2017Q3

REPORT INFORMATION
  Report Type: Spontaneous
  Country: US (occurrence: US)
  Receive Date: 20170901
  Receipt Date: 20170901
  Transmission Date: 20171127
  Serious: No
  Sender: FDA-Public Use
  Company Number: PHEH2017US027976

PATIENT
  Sex: Male
  Weight: 91.8 kg

DRUGS (1)
  1. AFINITOR [Suspect]
     Active Substance: EVEROLIMUS
     Indication: CARCINOID SYNDROME
     Dosage: 7.5 UG, QD
     Route: 048
     Dates: start: 20170809

REACTIONS (2)
  - Product use in unapproved indication [Unknown]
  - Rash pruritic [Unknown]
